FAERS Safety Report 18685484 (Version 2)
Quarter: 2021Q1

REPORT INFORMATION
  Report Type: Spontaneous
  Country: US (occurrence: US)
  Receive Date: 20201230
  Receipt Date: 20210111
  Transmission Date: 20210419
  Serious: Yes (Death, Life-Threatening, Other)
  Sender: FDA-Public Use
  Company Number: US-PFIZER INC-2020515435

PATIENT
  Age: 49 Year
  Sex: Male

DRUGS (2)
  1. L?CARNITINE [LEVOCARNITINE] [Suspect]
     Active Substance: LEVOCARNITINE
     Indication: ENCEPHALOPATHY
     Dosage: UNK
  2. ACETYLCYSTEINE. [Suspect]
     Active Substance: ACETYLCYSTEINE
     Indication: ENCEPHALOPATHY
     Dosage: UNK

REACTIONS (1)
  - Drug ineffective [Fatal]
